FAERS Safety Report 7700249-6 (Version None)
Quarter: 2011Q3

REPORT INFORMATION
  Report Type: 
  Country: None (occurrence: None)
  Receive Date: 20110816
  Receipt Date: 20110729
  Transmission Date: 20111222
  Serious: Yes (Other)
  Sender: FDA-Public Use
  Company Number: JPI-P-016143

PATIENT
  Age: 59 Year
  Sex: Female
  Weight: 88.4514 kg

DRUGS (6)
  1. CONJUGATED ESTROGENS [Concomitant]
  2. ESCITALOPRAM OXALATE [Concomitant]
  3. XYREM [Suspect]
     Indication: NARCOLEPSY
     Dosage: (2 IN 1 D),ORAL ; 7.5 GM (3.75 GM,2 IN 1 D),ORAL
     Route: 048
     Dates: start: 20021007
  4. XYREM [Suspect]
     Indication: SOMNOLENCE
     Dosage: (2 IN 1 D),ORAL ; 7.5 GM (3.75 GM,2 IN 1 D),ORAL
     Route: 048
     Dates: start: 20021007
  5. ALPRAZOLAM [Suspect]
     Indication: ANXIETY
     Dates: start: 20110718
  6. LEVOTHYROXINE SODIUM [Concomitant]

REACTIONS (8)
  - VITAMIN D DECREASED [None]
  - BLOOD IRON DECREASED [None]
  - SEDATION [None]
  - ABDOMINAL PAIN [None]
  - SOMNOLENCE [None]
  - STRESS AT WORK [None]
  - COLON CANCER [None]
  - ANXIETY [None]
